FAERS Safety Report 7126422-6 (Version None)
Quarter: 2010Q4

REPORT INFORMATION
  Report Type: 
  Country: None (occurrence: None)
  Receive Date: 20101129
  Receipt Date: 20101015
  Transmission Date: 20110411
  Serious: Yes (Death, Other)
  Sender: FDA-Public Use
  Company Number: US-BAXTER-2008BH010991

PATIENT
  Age: 39 Year
  Sex: Male
  Weight: 103 kg

DRUGS (85)
  1. HEPARIN SODIUM INJECTION [Suspect]
     Indication: THROMBOSIS PROPHYLAXIS
     Route: 065
     Dates: start: 20070717
  2. HEPARIN SODIUM INJECTION [Suspect]
     Indication: ANTICOAGULANT THERAPY
     Route: 065
     Dates: start: 20070717
  3. HEPARIN SODIUM INJECTION [Suspect]
     Indication: CARDIAC OPERATION
     Route: 065
     Dates: start: 20070717
  4. HEPARIN SODIUM INJECTION [Suspect]
     Indication: DEEP VEIN THROMBOSIS
     Route: 065
     Dates: start: 20070717
  5. HEPARIN SODIUM INJECTION [Suspect]
     Route: 065
     Dates: start: 20041201, end: 20060801
  6. HEPARIN SODIUM INJECTION [Suspect]
     Route: 065
     Dates: start: 20041201, end: 20060801
  7. HEPARIN SODIUM INJECTION [Suspect]
     Route: 065
     Dates: start: 20041201, end: 20060801
  8. HEPARIN SODIUM INJECTION [Suspect]
     Route: 065
     Dates: start: 20041201, end: 20060801
  9. HEPARIN SODIUM INJECTION [Suspect]
     Route: 042
     Dates: start: 20061125
  10. HEPARIN SODIUM INJECTION [Suspect]
     Route: 042
     Dates: start: 20061125
  11. HEPARIN SODIUM INJECTION [Suspect]
     Route: 042
     Dates: start: 20061125
  12. HEPARIN SODIUM INJECTION [Suspect]
     Route: 042
     Dates: start: 20061125
  13. HEPARIN SODIUM INJECTION [Suspect]
     Route: 042
     Dates: start: 20070918, end: 20071004
  14. HEPARIN SODIUM INJECTION [Suspect]
     Route: 042
     Dates: start: 20070918, end: 20071004
  15. HEPARIN SODIUM INJECTION [Suspect]
     Route: 042
     Dates: start: 20070918, end: 20071004
  16. HEPARIN SODIUM INJECTION [Suspect]
     Route: 042
     Dates: start: 20070918, end: 20071004
  17. HEPARIN SODIUM INJECTION [Suspect]
     Route: 042
     Dates: start: 20071006, end: 20071103
  18. HEPARIN SODIUM INJECTION [Suspect]
     Route: 042
     Dates: start: 20071006, end: 20071103
  19. HEPARIN SODIUM INJECTION [Suspect]
     Route: 042
     Dates: start: 20071006, end: 20071103
  20. HEPARIN SODIUM INJECTION [Suspect]
     Route: 042
     Dates: start: 20071006, end: 20071103
  21. HEPARIN SODIUM INJECTION [Suspect]
     Route: 042
     Dates: start: 20071106, end: 20071106
  22. HEPARIN SODIUM INJECTION [Suspect]
     Route: 042
     Dates: start: 20071106, end: 20071106
  23. HEPARIN SODIUM INJECTION [Suspect]
     Route: 042
     Dates: start: 20071106, end: 20071106
  24. HEPARIN SODIUM INJECTION [Suspect]
     Route: 042
     Dates: start: 20071106, end: 20071106
  25. HEPARIN SODIUM INJECTION [Suspect]
     Route: 050
     Dates: start: 20071107, end: 20071107
  26. HEPARIN SODIUM INJECTION [Suspect]
     Route: 050
     Dates: start: 20071107, end: 20071107
  27. HEPARIN SODIUM INJECTION [Suspect]
     Route: 050
     Dates: start: 20071107, end: 20071107
  28. HEPARIN SODIUM INJECTION [Suspect]
     Route: 050
     Dates: start: 20071107, end: 20071107
  29. HEPARIN SODIUM INJECTION [Suspect]
     Route: 050
     Dates: start: 20071110, end: 20071110
  30. HEPARIN SODIUM INJECTION [Suspect]
     Route: 050
     Dates: start: 20071110, end: 20071110
  31. HEPARIN SODIUM INJECTION [Suspect]
     Route: 050
     Dates: start: 20071110, end: 20071110
  32. HEPARIN SODIUM INJECTION [Suspect]
     Route: 050
     Dates: start: 20071110, end: 20071110
  33. HEPARIN SODIUM INJECTION [Suspect]
     Route: 050
     Dates: start: 20071112, end: 20071112
  34. HEPARIN SODIUM INJECTION [Suspect]
     Route: 050
     Dates: start: 20071112, end: 20071112
  35. HEPARIN SODIUM INJECTION [Suspect]
     Route: 050
     Dates: start: 20071112, end: 20071112
  36. HEPARIN SODIUM INJECTION [Suspect]
     Route: 050
     Dates: start: 20071112, end: 20071112
  37. HEPARIN SODIUM INJECTION [Suspect]
     Route: 042
     Dates: start: 20071108, end: 20071108
  38. HEPARIN SODIUM INJECTION [Suspect]
     Route: 042
     Dates: start: 20071108, end: 20071108
  39. HEPARIN SODIUM INJECTION [Suspect]
     Route: 042
     Dates: start: 20071108, end: 20071108
  40. HEPARIN SODIUM INJECTION [Suspect]
     Route: 042
     Dates: start: 20071108, end: 20071108
  41. HEPARIN SODIUM INJECTION [Suspect]
     Route: 042
     Dates: start: 20071110, end: 20071110
  42. HEPARIN SODIUM INJECTION [Suspect]
     Route: 042
     Dates: start: 20071110, end: 20071110
  43. HEPARIN SODIUM INJECTION [Suspect]
     Route: 042
     Dates: start: 20071110, end: 20071110
  44. HEPARIN SODIUM INJECTION [Suspect]
     Route: 042
     Dates: start: 20071110, end: 20071110
  45. HEPARIN SODIUM INJECTION [Suspect]
     Route: 042
     Dates: start: 20071112, end: 20071112
  46. HEPARIN SODIUM INJECTION [Suspect]
     Route: 042
     Dates: start: 20071112, end: 20071112
  47. HEPARIN SODIUM INJECTION [Suspect]
     Route: 042
     Dates: start: 20071112, end: 20071112
  48. HEPARIN SODIUM INJECTION [Suspect]
     Route: 042
     Dates: start: 20071112, end: 20071112
  49. HEPARIN SODIUM INJECTION [Suspect]
     Route: 042
     Dates: start: 20071113, end: 20071113
  50. HEPARIN SODIUM INJECTION [Suspect]
     Route: 042
     Dates: start: 20071113, end: 20071113
  51. HEPARIN SODIUM INJECTION [Suspect]
     Route: 042
     Dates: start: 20071113, end: 20071113
  52. HEPARIN SODIUM INJECTION [Suspect]
     Route: 042
     Dates: start: 20071113, end: 20071113
  53. ANTIDEPRESSANTS [Concomitant]
     Indication: PRODUCT USED FOR UNKNOWN INDICATION
     Route: 048
  54. COUMADIN [Concomitant]
     Indication: PRODUCT USED FOR UNKNOWN INDICATION
     Route: 048
  55. PHENERGAN [Concomitant]
     Indication: PRODUCT USED FOR UNKNOWN INDICATION
     Route: 048
  56. HYDROCODONE [Concomitant]
     Indication: PRODUCT USED FOR UNKNOWN INDICATION
     Route: 048
  57. RENAGEL [Concomitant]
     Indication: PRODUCT USED FOR UNKNOWN INDICATION
     Route: 048
  58. ZYRTEC [Concomitant]
     Indication: PRODUCT USED FOR UNKNOWN INDICATION
     Route: 048
  59. ESZOPICLONE [Concomitant]
     Indication: PRODUCT USED FOR UNKNOWN INDICATION
     Route: 048
  60. EPOGEN [Concomitant]
     Indication: PRODUCT USED FOR UNKNOWN INDICATION
     Route: 065
  61. IRON [Concomitant]
     Indication: PRODUCT USED FOR UNKNOWN INDICATION
     Route: 065
  62. NORVASC [Concomitant]
     Indication: HYPERTENSION
     Route: 048
  63. COLACE [Concomitant]
     Indication: PRODUCT USED FOR UNKNOWN INDICATION
     Route: 048
  64. VANCOMYCIN [Concomitant]
     Indication: PRODUCT USED FOR UNKNOWN INDICATION
     Route: 065
  65. VENOFER [Concomitant]
     Indication: PRODUCT USED FOR UNKNOWN INDICATION
     Route: 065
  66. ZEMPLAR [Concomitant]
     Indication: PRODUCT USED FOR UNKNOWN INDICATION
     Route: 065
  67. GENTAMICIN [Concomitant]
     Indication: PRODUCT USED FOR UNKNOWN INDICATION
     Route: 065
  68. OXYCODONE HCL [Concomitant]
     Indication: PRODUCT USED FOR UNKNOWN INDICATION
     Route: 065
  69. OXYCONTIN [Concomitant]
     Indication: PRODUCT USED FOR UNKNOWN INDICATION
     Route: 065
  70. OXYMORPHONE [Concomitant]
     Indication: PRODUCT USED FOR UNKNOWN INDICATION
     Route: 065
  71. LOPRESSOR [Concomitant]
     Indication: PRODUCT USED FOR UNKNOWN INDICATION
     Route: 065
  72. FENTANYL [Concomitant]
     Indication: PRODUCT USED FOR UNKNOWN INDICATION
     Route: 065
  73. VERSED [Concomitant]
     Indication: PRODUCT USED FOR UNKNOWN INDICATION
     Route: 065
  74. VANCOMYCIN [Concomitant]
     Route: 065
  75. ZOFRAN [Concomitant]
     Indication: PRODUCT USED FOR UNKNOWN INDICATION
     Route: 065
  76. DILAUDID [Concomitant]
     Indication: PRODUCT USED FOR UNKNOWN INDICATION
     Route: 065
  77. DAPTOMYCIN [Concomitant]
     Indication: PRODUCT USED FOR UNKNOWN INDICATION
     Route: 065
  78. COUMADIN [Concomitant]
     Route: 065
  79. DOBUTAMINE [Concomitant]
     Indication: PRODUCT USED FOR UNKNOWN INDICATION
     Route: 065
  80. ZEMPLAR [Concomitant]
     Route: 065
  81. DOPAMINE [Concomitant]
     Indication: PRODUCT USED FOR UNKNOWN INDICATION
     Route: 065
  82. PANTOPRAZOLE [Concomitant]
     Indication: PRODUCT USED FOR UNKNOWN INDICATION
     Route: 065
  83. REGLAN [Concomitant]
     Indication: PRODUCT USED FOR UNKNOWN INDICATION
     Route: 065
  84. COMPAZINE [Concomitant]
     Indication: PRODUCT USED FOR UNKNOWN INDICATION
     Route: 065
  85. PERCOCET [Concomitant]
     Indication: PRODUCT USED FOR UNKNOWN INDICATION
     Route: 048

REACTIONS (16)
  - ABDOMINAL PAIN [None]
  - ATRIAL FIBRILLATION [None]
  - ATRIOVENTRICULAR BLOCK COMPLETE [None]
  - BLEEDING TIME PROLONGED [None]
  - CARDIAC OPERATION [None]
  - CHEST PAIN [None]
  - DYSPNOEA [None]
  - ENDOCARDITIS [None]
  - HYPERHIDROSIS [None]
  - NAUSEA [None]
  - PAIN [None]
  - RASH [None]
  - RENAL FAILURE [None]
  - SEPSIS [None]
  - VENA CAVA THROMBOSIS [None]
  - VOMITING [None]
